FAERS Safety Report 5717879-3 (Version None)
Quarter: 2008Q2

REPORT INFORMATION
  Report Type: 
  Country: None (occurrence: None)
  Receive Date: 20080425
  Receipt Date: 20080414
  Transmission Date: 20081010
  Serious: Yes (Other)
  Sender: FDA-Public Use
  Company Number: BR-JNJFOC-20080405013

PATIENT
  Age: 52 Year
  Sex: Female
  Weight: 58 kg

DRUGS (2)
  1. ULTRACET [Suspect]
     Indication: PAIN IN EXTREMITY
     Dosage: 37.5/325MG
     Route: 048
  2. PREXIGE [Concomitant]
     Indication: ARTHROSCOPY

REACTIONS (1)
  - APHTHOUS STOMATITIS [None]
